FAERS Safety Report 14544035 (Version 2)
Quarter: 2018Q1

REPORT INFORMATION
  Report Type: Spontaneous
  Country: US (occurrence: US)
  Receive Date: 20180216
  Receipt Date: 20180316
  Transmission Date: 20180509
  Serious: Yes (Other)
  Sender: FDA-Public Use
  Company Number: US-PFIZER INC-2018059106

PATIENT
  Age: 53 Year
  Sex: Female
  Weight: 90.7 kg

DRUGS (7)
  1. OXYCODONE [Concomitant]
     Active Substance: OXYCODONE
     Indication: BREAKTHROUGH PAIN
     Dosage: 10 MG, AS NEEDED, (TWICE DAILY), (SHE HAS BEEN ON FOR AT LEAST 5-6 YEARS, IF NOT LONGER)
     Route: 048
  2. LYRICA [Concomitant]
     Active Substance: PREGABALIN
     Indication: NEURALGIA
     Dosage: 75 MG, AS NEEDED, (BECAUSE SHE FEELS BAD IF SHE TAKES A)
  3. EMBEDA [Suspect]
     Active Substance: MORPHINE SULFATE\NALTREXONE HYDROCHLORIDE
     Indication: PAIN
     Dosage: 20 MG, 2X/DAY, (20MG/0.8MG CAPSULE))
     Route: 048
     Dates: start: 20171019
  4. AMLODIPINE [Concomitant]
     Active Substance: AMLODIPINE BESYLATE
     Indication: BLOOD PRESSURE MEASUREMENT
     Dosage: 5 MG, 1X/DAY, (ON FOR ABOUT 3 YEARS)
     Route: 048
  5. AMOXICILLIN. [Concomitant]
     Active Substance: AMOXICILLIN
     Dosage: UNK
  6. METOPROLOL. [Concomitant]
     Active Substance: METOPROLOL
     Indication: BLOOD PRESSURE MEASUREMENT
     Dosage: 100 MG, 1X/DAY, (ON FOR 4-5 YEARS)
     Route: 048
  7. FLEXERIL [Concomitant]
     Active Substance: CYCLOBENZAPRINE HYDROCHLORIDE
     Indication: MUSCLE SPASMS
     Dosage: 10 MG, AS NEEDED, (THREE TIMES DAILY), (ON FOR LONG TIME)
     Route: 048

REACTIONS (28)
  - Blood pressure increased [Not Recovered/Not Resolved]
  - Vomiting [Not Recovered/Not Resolved]
  - Malaise [Unknown]
  - Hyperhidrosis [Not Recovered/Not Resolved]
  - Product odour abnormal [Unknown]
  - Nephrolithiasis [Not Recovered/Not Resolved]
  - Renal mass [Not Recovered/Not Resolved]
  - Headache [Not Recovered/Not Resolved]
  - Gastric disorder [Unknown]
  - Hepatic enzyme increased [Unknown]
  - Bone disorder [Not Recovered/Not Resolved]
  - Product quality issue [Unknown]
  - Vision blurred [Unknown]
  - Poor quality drug administered [Unknown]
  - Product taste abnormal [Unknown]
  - Cataract [Unknown]
  - Eructation [Not Recovered/Not Resolved]
  - Flushing [Unknown]
  - Skin discolouration [Unknown]
  - Abdominal distension [Unknown]
  - Renal disorder [Not Recovered/Not Resolved]
  - Nausea [Not Recovered/Not Resolved]
  - Weight increased [Not Recovered/Not Resolved]
  - Micturition disorder [Unknown]
  - Swelling [Unknown]
  - Product colour issue [Unknown]
  - Condition aggravated [Not Recovered/Not Resolved]
  - Dyspepsia [Unknown]

NARRATIVE: CASE EVENT DATE: 2017
